FAERS Safety Report 4939848-3 (Version None)
Quarter: 2006Q1

REPORT INFORMATION
  Report Type: 
  Country: None (occurrence: None)
  Receive Date: 20060310
  Receipt Date: 20060306
  Transmission Date: 20060701
  Serious: Yes (Hospitalization)
  Sender: FDA-Public Use
  Company Number: ES-SANOFI-SYNTHELABO-F01200600652

PATIENT
  Sex: Female

DRUGS (9)
  1. OXALIPLATIN [Suspect]
     Indication: COLORECTAL CANCER METASTATIC
     Route: 042
  2. CAPECITABINE [Suspect]
     Dosage: FOR FOURTEEN DAYS EVERY 3 WEEKS
     Route: 048
  3. BEVACIZUMAB OR PLACEBO [Suspect]
     Dosage: UNK
     Route: 042
  4. PANTOPRAZOLE [Concomitant]
     Dosage: UNK
     Route: 065
  5. SUCRALFATE [Concomitant]
     Dosage: UNK
     Route: 065
  6. LORAZEPAM [Concomitant]
     Dosage: UNK
     Route: 065
     Dates: start: 20050208
  7. MAYGACE [Concomitant]
     Dosage: UNK
     Route: 065
  8. METAMIZOL [Concomitant]
     Dosage: UNK
     Route: 065
  9. OMEPRAZOLE [Concomitant]
     Dosage: UNK
     Route: 065
     Dates: start: 20050208

REACTIONS (4)
  - ABDOMINAL SEPSIS [None]
  - ENTEROCUTANEOUS FISTULA [None]
  - FEBRILE NEUTROPENIA [None]
  - INTESTINAL PERFORATION [None]
